FAERS Safety Report 8471210-1 (Version None)
Quarter: 2012Q2

REPORT INFORMATION
  Report Type: 
  Country: None (occurrence: None)
  Receive Date: 20120627
  Receipt Date: 20120130
  Transmission Date: 20120825
  Serious: Yes (Death, Other)
  Sender: FDA-Public Use
  Company Number: DE-ASTELLAS-2012EU004574

PATIENT
  Sex: Female

DRUGS (1)
  1. PROGRAF [Suspect]
     Dosage: 0.5 MG, UNKNOWN/D
     Route: 065

REACTIONS (3)
  - DEATH [None]
  - HAEMOLYTIC URAEMIC SYNDROME [None]
  - THROMBOTIC THROMBOCYTOPENIC PURPURA [None]
